FAERS Safety Report 11617631 (Version 3)
Quarter: 2015Q4

REPORT INFORMATION
  Report Type: Spontaneous
  Country: US (occurrence: US)
  Receive Date: 20151009
  Receipt Date: 20151105
  Transmission Date: 20160304
  Serious: Yes (Death, Hospitalization, Other)
  Sender: FDA-Public Use
  Company Number: US-GLAXOSMITHKLINE-US2015GSK143875

PATIENT
  Age: 81 Year
  Sex: Male

DRUGS (1)
  1. ANORO ELLIPTA [Suspect]
     Active Substance: UMECLIDINIUM BROMIDE\VILANTEROL TRIFENATATE

REACTIONS (9)
  - Tachycardia [Unknown]
  - Dysuria [Unknown]
  - Asthenia [Unknown]
  - Hospitalisation [Unknown]
  - Death [Fatal]
  - Pain in extremity [Unknown]
  - Emergency care examination [Unknown]
  - Living in residential institution [Unknown]
  - Blood potassium decreased [Unknown]

NARRATIVE: CASE EVENT DATE: 20151015
